FAERS Safety Report 4930376-8 (Version None)
Quarter: 2006Q1

REPORT INFORMATION
  Report Type: 
  Country: None (occurrence: None)
  Receive Date: 20060302
  Receipt Date: 20060222
  Transmission Date: 20060701
  Serious: Yes (Hospitalization)
  Sender: FDA-Public Use
  Company Number: JP-JPN-A200600707

PATIENT
  Age: 72 Year
  Sex: Female
  Weight: 52 kg

DRUGS (2)
  1. VALTREX [Suspect]
     Indication: HERPES ZOSTER
     Dosage: 1000MG THREE TIMES PER DAY
     Route: 048
     Dates: start: 20060215, end: 20060217
  2. VOLTAREN [Concomitant]
     Dosage: 1CAP THREE TIMES PER DAY
     Route: 048

REACTIONS (2)
  - RENAL FAILURE ACUTE [None]
  - URINE OUTPUT DECREASED [None]
